FAERS Safety Report 9076889 (Version 1)
Quarter: 2013Q1

REPORT INFORMATION
  Report Type: Report from Study
  Country: US (occurrence: US)
  Receive Date: 20130129
  Receipt Date: 20130129
  Transmission Date: 20140127
  Serious: No
  Sender: FDA-Public Use
  Company Number: US-ABBOTT-12P-163-0942405-00

PATIENT
  Age: 19 Year
  Sex: Male

DRUGS (5)
  1. HUMIRA 40 MG/0.8 ML PEN [Suspect]
     Indication: CROHN^S DISEASE
     Dates: start: 20120420, end: 20120615
  2. FLAGYL [Concomitant]
     Indication: CROHN^S DISEASE
  3. APRISO [Concomitant]
     Indication: CROHN^S DISEASE
     Dosage: 4 CAPSULES DAILY
  4. DEPAKENE [Concomitant]
     Indication: AFFECTIVE DISORDER
     Dosage: 2 TSP IN AM, 2 TSP AT NOON, 3 TSP NIGHT
     Route: 048
  5. DEPAKENE [Concomitant]
     Indication: AUTISM

REACTIONS (3)
  - Sinus congestion [Recovering/Resolving]
  - Nasopharyngitis [Recovering/Resolving]
  - Sinusitis [Recovering/Resolving]
